FAERS Safety Report 10619528 (Version 6)
Quarter: 2015Q3

REPORT INFORMATION
  Report Type: Spontaneous
  Country: BR (occurrence: BR)
  Receive Date: 20141202
  Receipt Date: 20150814
  Transmission Date: 20151125
  Serious: Yes (Other)
  Sender: FDA-Public Use
  Company Number: BR-PFIZER INC-2014323033

PATIENT
  Age: 55 Year
  Sex: Male
  Weight: 68 kg

DRUGS (8)
  1. PHARMATON /00124801/ [Concomitant]
     Dosage: UNK
     Dates: start: 201407
  2. CHAMPIX [Suspect]
     Active Substance: VARENICLINE TARTRATE
     Dosage: UNK
     Dates: start: 20141220
  3. CHAMPIX [Suspect]
     Active Substance: VARENICLINE TARTRATE
     Indication: SMOKING CESSATION THERAPY
     Dosage: 1 TABLET, TWICE A DAY (AFTER BREAKFAST AND ANOTHER ONE AT NIGHT)
     Route: 048
     Dates: start: 20141001
  4. ATENSINA [Concomitant]
     Active Substance: CLONIDINE
     Indication: BLOOD PRESSURE INCREASED
     Dosage: ONE TABLET (0.1 MG), ONCE DAILY
     Dates: start: 2014
  5. ATENSINA [Concomitant]
     Active Substance: CLONIDINE
     Dosage: ONE TABLET (0.1 MG), 2X/DAY (IN THE MORNING AND AT NIGHT)
     Dates: start: 201502
  6. PREVELIP [Concomitant]
     Dosage: UNK, AT BREAKFAST
     Dates: start: 201407
  7. CHAMPIX [Suspect]
     Active Substance: VARENICLINE TARTRATE
     Dosage: 1 DF, 2X/DAY (AFTER BREAKFAST AND ANOTHER ONE AT NIGHT)
     Dates: start: 20150517
  8. CHAMPIX [Suspect]
     Active Substance: VARENICLINE TARTRATE
     Dosage: UNK
     Dates: start: 201411

REACTIONS (5)
  - Eyelid oedema [Unknown]
  - Drug effect delayed [Not Recovered/Not Resolved]
  - Eyelid disorder [Unknown]
  - Asthenia [Unknown]
  - Anxiety [Not Recovered/Not Resolved]

NARRATIVE: CASE EVENT DATE: 201411
